FAERS Safety Report 8187101-X (Version None)
Quarter: 2012Q1

REPORT INFORMATION
  Report Type: 
  Country: None (occurrence: None)
  Receive Date: 20120213
  Receipt Date: 20111031
  Transmission Date: 20120608
  Serious: No
  Sender: FDA-Public Use
  Company Number: 1000017263

PATIENT
  Age: 53 Year
  Sex: Female

DRUGS (7)
  1. VALIUM [Concomitant]
  2. INDERAL (PROPRANOLOL) (PROPRANOLOL) [Concomitant]
  3. SAVELLA [Suspect]
     Indication: FIBROMYALGIA
     Dosage: 200 MG (100 MG, 2 IN 1 D), ORAL
     Route: 048
     Dates: start: 20101001, end: 20110701
  4. CARAFATE (SUCRALFATE) (SUCRALFATE) [Concomitant]
  5. TRILEPTAL (OXCARBAZEPINE) (OXCARBAZEPINE) [Concomitant]
  6. SYNTHROID (LEVOTHYROXINE SODIUM) (LEVOTHYROXINE SODIUM) [Concomitant]
  7. TOPAMAX (TOPIRAMATE) (TOPIRAMATE) [Concomitant]

REACTIONS (2)
  - ABDOMINAL PAIN UPPER [None]
  - NAUSEA [None]
